FAERS Safety Report 9698890 (Version 1)
Quarter: 2013Q4

REPORT INFORMATION
  Report Type: Spontaneous
  Country: US (occurrence: US)
  Receive Date: 20131120
  Receipt Date: 20131120
  Transmission Date: 20140711
  Serious: Yes (Other)
  Sender: FDA-Public Use
  Company Number: US-PFIZER INC-2013331322

PATIENT
  Age: 67 Year
  Sex: Female
  Weight: 80.7 kg

DRUGS (3)
  1. EFFEXOR XR [Suspect]
     Indication: DEPRESSION
     Dosage: 375 MG, DAILY
     Dates: end: 2013
  2. EFFEXOR XR [Suspect]
     Dosage: 150 MG, DAILY
     Dates: start: 2013, end: 201311
  3. VENLAFAXINE HYDROCHLORIDE [Suspect]
     Indication: DEPRESSION
     Dosage: 150 MG, DAILY
     Dates: start: 201310

REACTIONS (7)
  - Neoplasm malignant [Unknown]
  - Nerve injury [Unknown]
  - Dyskinesia [Unknown]
  - Fall [Unknown]
  - Malaise [Unknown]
  - Limb discomfort [Unknown]
  - Drug ineffective [Unknown]
